FAERS Safety Report 6443275-X (Version None)
Quarter: 2009Q4

REPORT INFORMATION
  Report Type: 
  Country: None (occurrence: None)
  Receive Date: 20091112
  Receipt Date: 20091030
  Transmission Date: 20100525
  Serious: Yes (Other)
  Sender: FDA-Public Use
  Company Number: 2009AL007076

PATIENT
  Age: 66 Year
  Sex: Female

DRUGS (7)
  1. GABAPENTIN [Suspect]
     Dosage: PO
     Route: 048
     Dates: start: 20051101, end: 20060210
  2. LYRICA [Concomitant]
  3. AZITHROMYCIN [Concomitant]
  4. BENDROFLUAZIDE [Concomitant]
  5. PARACETAMOL [Concomitant]
  6. LATANOPROST [Concomitant]
  7. CODEINE [Concomitant]

REACTIONS (10)
  - DEPRESSION [None]
  - DISORIENTATION [None]
  - DIZZINESS [None]
  - FEELING ABNORMAL [None]
  - HUNGER [None]
  - HYPERHIDROSIS [None]
  - MYALGIA [None]
  - SENSORY DISTURBANCE [None]
  - SLEEP DISORDER [None]
  - SUICIDAL IDEATION [None]
